FAERS Safety Report 17992865 (Version 2)
Quarter: 2020Q4

REPORT INFORMATION
  Report Type: Spontaneous
  Country: US (occurrence: US)
  Receive Date: 20200708
  Receipt Date: 20201027
  Transmission Date: 20210113
  Serious: Yes (Other)
  Sender: FDA-Public Use
  Company Number: US-ASTRAZENECA-2020SE83317

PATIENT
  Age: 9967 Day
  Sex: Male
  Weight: 111.1 kg

DRUGS (27)
  1. AMLODIPINE [Concomitant]
     Active Substance: AMLODIPINE BESYLATE
  2. CYCLOBENZAPRINE. [Concomitant]
     Active Substance: CYCLOBENZAPRINE
  3. ZOFRAN [Concomitant]
     Active Substance: ONDANSETRON HYDROCHLORIDE
  4. PRILOSEC [Suspect]
     Active Substance: OMEPRAZOLE MAGNESIUM
     Indication: GASTROOESOPHAGEAL REFLUX DISEASE
     Route: 048
     Dates: start: 2007, end: 2014
  5. PROTONIX [Suspect]
     Active Substance: PANTOPRAZOLE SODIUM
     Indication: GASTROOESOPHAGEAL REFLUX DISEASE
     Route: 065
     Dates: start: 2007, end: 2014
  6. AMITRIPTYLINE [Concomitant]
     Active Substance: AMITRIPTYLINE
  7. CARVEDILOL. [Concomitant]
     Active Substance: CARVEDILOL
  8. METHADONE [Concomitant]
     Active Substance: METHADONE HYDROCHLORIDE
  9. GABAPENTIN. [Concomitant]
     Active Substance: GABAPENTIN
  10. CARVEDILOL. [Concomitant]
     Active Substance: CARVEDILOL
  11. AMLODIPINE [Concomitant]
     Active Substance: AMLODIPINE BESYLATE
  12. NITROSTAT [Concomitant]
     Active Substance: NITROGLYCERIN
  13. FUROSEMIDE. [Concomitant]
     Active Substance: FUROSEMIDE
  14. METFORMIN [Concomitant]
     Active Substance: METFORMIN HYDROCHLORIDE
  15. VANCOMYCIN [Concomitant]
     Active Substance: VANCOMYCIN
  16. SULFAMETH [Concomitant]
  17. NOVOLOG [Concomitant]
     Active Substance: INSULIN ASPART
  18. CYCLOBENZAPRINE. [Concomitant]
     Active Substance: CYCLOBENZAPRINE
  19. BYDUREON [Concomitant]
     Active Substance: EXENATIDE
  20. BISACODYL. [Concomitant]
     Active Substance: BISACODYL
  21. FUROSEMIDE. [Concomitant]
     Active Substance: FUROSEMIDE
  22. ENOXAPARIN [Concomitant]
     Active Substance: ENOXAPARIN
  23. LANTUS [Concomitant]
     Active Substance: INSULIN GLARGINE
  24. METHADONE [Concomitant]
     Active Substance: METHADONE HYDROCHLORIDE
  25. FERROUS SULFATE. [Concomitant]
     Active Substance: FERROUS SULFATE
  26. AMITRIPTYLINE [Concomitant]
     Active Substance: AMITRIPTYLINE
  27. CEFUROXIME AXETIL. [Concomitant]
     Active Substance: CEFUROXIME AXETIL

REACTIONS (4)
  - Renal tubular injury [Unknown]
  - Acute kidney injury [Not Recovered/Not Resolved]
  - Renal failure [Unknown]
  - Chronic kidney disease [Not Recovered/Not Resolved]

NARRATIVE: CASE EVENT DATE: 20140424
